FAERS Safety Report 5723947-2 (Version None)
Quarter: 2008Q2

REPORT INFORMATION
  Report Type: 
  Country: None (occurrence: None)
  Receive Date: 20080428
  Receipt Date: 20080425
  Transmission Date: 20081010
  Serious: Yes (Hospitalization)
  Sender: FDA-Public Use
  Company Number: ADR0782008

PATIENT
  Age: 44 Year
  Sex: Female

DRUGS (10)
  1. CITALOPRAM HYDROBROMIDE [Suspect]
     Indication: DEPRESSION
     Dosage: 40 MG, ORAL
     Route: 048
  2. MEPERIDINE HCL [Concomitant]
  3. HYDROMORPHONE HCL [Concomitant]
  4. HYDROCODONE BITARTRATE-ACETOMINOPHEN [Concomitant]
  5. PROMETHAZINE [Concomitant]
  6. GATIFLOXACIN [Concomitant]
  7. ZOLPIDEM [Concomitant]
  8. LANSOPRAZOLE [Concomitant]
  9. ENOXAPARIN SODIUM [Concomitant]
  10. FENTANYL CITRATE [Concomitant]

REACTIONS (8)
  - AGITATION [None]
  - CONDITION AGGRAVATED [None]
  - DEPRESSION [None]
  - DISORIENTATION [None]
  - ILLUSION [None]
  - PAIN [None]
  - PARANOIA [None]
  - SEROTONIN SYNDROME [None]
